FAERS Safety Report 5604500-8 (Version None)
Quarter: 2008Q1

REPORT INFORMATION
  Report Type: 
  Country: None (occurrence: None)
  Receive Date: 20080128
  Receipt Date: 20080117
  Transmission Date: 20080703
  Serious: Yes (Other)
  Sender: FDA-Public Use
  Company Number: IT-ROCHE-541905

PATIENT
  Age: 88 Year
  Sex: Female

DRUGS (6)
  1. ROCEPHIN [Suspect]
     Indication: COUGH
     Dosage: FORM REPORTED: VIAL
     Route: 030
     Dates: start: 20080101, end: 20080104
  2. PRONTINAL [Concomitant]
     Indication: COUGH
     Dosage: STRENGTH REPORTED: 0.8 MG/2 ML
     Route: 055
  3. BREVA [Concomitant]
     Indication: COUGH
     Route: 055
  4. FLUIBRON [Concomitant]
     Indication: COUGH
     Route: 055
  5. FLUIFORT [Concomitant]
     Indication: COUGH
     Route: 048
  6. BENEXOL [Concomitant]
     Route: 048

REACTIONS (2)
  - LIP OEDEMA [None]
  - THROAT TIGHTNESS [None]
